FAERS Safety Report 16827979 (Version 4)
Quarter: 2020Q3

REPORT INFORMATION
  Report Type: Report from Study
  Country: None (occurrence: US)
  Receive Date: 20190919
  Receipt Date: 20200910
  Transmission Date: 20201102
  Serious: Yes (Other)
  Sender: FDA-Public Use
  Company Number: US-ABBVIE-19K-163-2925694-00

PATIENT
  Sex: Male
  Weight: 129.39 kg

DRUGS (1)
  1. HUMIRA [Suspect]
     Active Substance: ADALIMUMAB
     Indication: UVEITIS
     Dosage: CITRATE FREE
     Route: 058
     Dates: start: 2018

REACTIONS (8)
  - Corneal graft failure [Not Recovered/Not Resolved]
  - Influenza [Recovered/Resolved]
  - Eye disorder [Unknown]
  - Corneal transplant [Unknown]
  - Corneal transplant [Not Recovered/Not Resolved]
  - Visual impairment [Recovering/Resolving]
  - Impaired healing [Recovering/Resolving]
  - Retinal aneurysm rupture [Recovered/Resolved]

NARRATIVE: CASE EVENT DATE: 2018
